FAERS Safety Report 8818576 (Version 3)
Quarter: 2017Q2

REPORT INFORMATION
  Report Type: Spontaneous
  Country: DE (occurrence: DE)
  Receive Date: 20121001
  Receipt Date: 20170621
  Transmission Date: 20170830
  Serious: Yes (Other)
  Sender: FDA-Public Use
  Company Number: DE-PFIZER INC-2012241414

PATIENT
  Age: 37 Year
  Sex: Female

DRUGS (11)
  1. QUILONUM - SLOW RELEASE [Suspect]
     Active Substance: LITHIUM CARBONATE
     Dosage: 450 MG, 1X/DAY (GESTATIONAL WEEK 31)
     Route: 048
  2. FOLASURE [Concomitant]
     Indication: PROPHYLAXIS OF NEURAL TUBE DEFECT
     Dosage: UNK
     Route: 048
  3. QUILONUM - SLOW RELEASE [Suspect]
     Active Substance: LITHIUM CARBONATE
     Dosage: 675 MG, 1X/DAY (GESTATIONAL WEEK 32)
     Route: 048
  4. SERTRALINE [Concomitant]
     Active Substance: SERTRALINE HYDROCHLORIDE
     Indication: OBSESSIVE-COMPULSIVE DISORDER
     Dosage: 100 MG, 1X/DAY (GESTATIONAL WEEK 21-24)
     Route: 048
  5. SERTRALINE [Concomitant]
     Active Substance: SERTRALINE HYDROCHLORIDE
     Dosage: 150 MG, 1X/DAY (GESTATIONAL WEEK 25-27)
     Route: 048
  6. VENLAFAXINE HCL [Suspect]
     Active Substance: VENLAFAXINE HYDROCHLORIDE
     Indication: DEPRESSION
     Dosage: 75 MG, 1X/DAY SINCE GESTATIONAL WEEK 27
     Route: 048
  7. VENLAFAXINE HCL [Suspect]
     Active Substance: VENLAFAXINE HYDROCHLORIDE
     Dosage: 350 MG, 1X/DAY (22-35 GESTATIONAL WEEK)
     Route: 048
  8. QUILONUM - SLOW RELEASE [Suspect]
     Active Substance: LITHIUM CARBONATE
     Dosage: 900 MG, 1X/DAY (GESTATIONAL WEEK 33-35)
     Route: 048
  9. QUILONUM - SLOW RELEASE [Suspect]
     Active Substance: LITHIUM CARBONATE
     Indication: OBSESSIVE-COMPULSIVE DISORDER
     Dosage: 225 MG, 1X/DAY (GESTATIONAL WEEK 30)
     Route: 048
  10. SERTRALINE [Concomitant]
     Active Substance: SERTRALINE HYDROCHLORIDE
     Indication: DEPRESSION
     Dosage: 50 MG, 1X/DAY (GESTATIONAL WEEK 18-20)
     Route: 048
  11. OLANZAPINE. [Suspect]
     Active Substance: OLANZAPINE
     Indication: OBSESSIVE-COMPULSIVE DISORDER
     Dosage: 2.5 MG, 1X/DAY (FROM GESTATIONAL WEEK 27-35)
     Route: 048

REACTIONS (3)
  - Gastroenteritis norovirus [Unknown]
  - Foetal death [Unknown]
  - Placental disorder [Unknown]
